FAERS Safety Report 5916639-8 (Version None)
Quarter: 2008Q4

REPORT INFORMATION
  Report Type: 
  Country: None (occurrence: None)
  Receive Date: 20081009
  Receipt Date: 20080926
  Transmission Date: 20090506
  Serious: Yes (Hospitalization)
  Sender: FDA-Public Use
  Company Number: 192003

PATIENT
  Age: 49 Year
  Sex: Female
  Weight: 96.1626 kg

DRUGS (9)
  1. AVONEX [Suspect]
     Indication: MULTIPLE SCLEROSIS
     Dosage: 30 UG; QW; IM
     Route: 030
     Dates: start: 19980401, end: 20030601
  2. AVONEX [Suspect]
     Indication: MULTIPLE SCLEROSIS
     Dosage: 30 UG; QW; IM
     Route: 030
     Dates: start: 20030801, end: 20030901
  3. AVONEX [Suspect]
     Indication: MULTIPLE SCLEROSIS
     Dosage: 30 UG; QW; IM
     Route: 030
     Dates: start: 20030901
  4. TYLOX [Concomitant]
  5. SOMA [Concomitant]
  6. KLONOPIN [Concomitant]
  7. DOXEPIN HCL [Concomitant]
  8. ZOMIG [Concomitant]
  9. MAXALT [Concomitant]

REACTIONS (15)
  - ANKLE FRACTURE [None]
  - CONDITION AGGRAVATED [None]
  - CONVULSION [None]
  - ECONOMIC PROBLEM [None]
  - FALL [None]
  - HYPERTENSION [None]
  - INFLUENZA LIKE ILLNESS [None]
  - LOSS OF CONTROL OF LEGS [None]
  - MIGRAINE [None]
  - MULTIPLE SCLEROSIS [None]
  - MULTIPLE SCLEROSIS RELAPSE [None]
  - SKIN LACERATION [None]
  - STRESS [None]
  - URINARY RETENTION [None]
  - URINARY TRACT INFECTION [None]
